FAERS Safety Report 6580474-0 (Version None)
Quarter: 2010Q1

REPORT INFORMATION
  Report Type: 
  Country: None (occurrence: None)
  Receive Date: 20100212
  Receipt Date: 20100204
  Transmission Date: 20100710
  Serious: Yes (Other)
  Sender: FDA-Public Use
  Company Number: GB-JNJCH-2009024524

PATIENT
  Sex: Male
  Weight: 68 kg

DRUGS (4)
  1. CETIRIZINE HCL [Suspect]
     Indication: DRUG USE FOR UNKNOWN INDICATION
     Dosage: TEXT:5 MG, DOSE FREQ.: DAILY
     Route: 048
  2. LEVOCETIRIZINE DIHYDROCHLORIDE [Suspect]
     Indication: RHINITIS
     Dosage: TEXT:5MG QD
     Route: 048
     Dates: start: 20090212
  3. VALSARTAN [Concomitant]
     Indication: HYPERTENSION
     Dosage: TEXT:80MG QD
     Route: 048
  4. NASONEX [Concomitant]
     Indication: RHINITIS
     Dosage: TEXT:50MG BID
     Route: 045
     Dates: start: 20080717

REACTIONS (1)
  - VISUAL FIELD DEFECT [None]
